FAERS Safety Report 6447010-0 (Version None)
Quarter: 2009Q4

REPORT INFORMATION
  Report Type: 
  Country: None (occurrence: None)
  Receive Date: 20091110
  Receipt Date: 20090716
  Transmission Date: 20100525
  Serious: No
  Sender: FDA-Public Use
  Company Number: 1000007554

PATIENT
  Age: 61 Year
  Sex: Female

DRUGS (10)
  1. SAVELLA [Suspect]
     Indication: FIBROMYALGIA
     Dosage: 12.5 MG (12.5 MG, 1 IN 1 ) ORAL
     Route: 048
     Dates: start: 20090616, end: 20090616
  2. SAVELLA [Suspect]
     Indication: FIBROMYALGIA
     Dosage: 100 MG (50 MG, 2 IN 1 D), ORAL
     Route: 048
     Dates: start: 20090623, end: 20090701
  3. RITALIN [Concomitant]
  4. WELLBUTRIN [Concomitant]
  5. LUVOX [Concomitant]
  6. VAGIFEM [Concomitant]
  7. SKELAXIN [Concomitant]
  8. DIAZEPAM [Concomitant]
  9. PHENERGAN HCL [Concomitant]
  10. TYELNON PM [Concomitant]

REACTIONS (1)
  - SOMNOLENCE [None]
